FAERS Safety Report 5415511-X (Version None)
Quarter: 2007Q3

REPORT INFORMATION
  Report Type: 
  Country: None (occurrence: None)
  Receive Date: 20070815
  Receipt Date: 20070810
  Transmission Date: 20080115
  Serious: Yes (Life-Threatening, Other)
  Sender: FDA-Public Use
  Company Number: A0579157A

PATIENT
  Age: 82 Year
  Sex: Male

DRUGS (1)
  1. ADVAIR DISKUS 100/50 [Suspect]
     Indication: ASTHMA
     Dosage: 2PUFF PER DAY
     Route: 055
     Dates: start: 20050101

REACTIONS (4)
  - COUGH [None]
  - DRUG INEFFECTIVE [None]
  - OSTEOPOROSIS [None]
  - SPUTUM DISCOLOURED [None]
